FAERS Safety Report 6561253-7 (Version None)
Quarter: 2010Q1

REPORT INFORMATION
  Report Type: 
  Country: None (occurrence: None)
  Receive Date: 20100130
  Receipt Date: 20091009
  Transmission Date: 20100710
  Serious: No
  Sender: FDA-Public Use
  Company Number: US-ABBOTT-09P-163-0602369-00

PATIENT
  Sex: Female
  Weight: 59.02 kg

DRUGS (2)
  1. HUMIRA [Suspect]
     Indication: CROHN'S DISEASE
     Dates: start: 20080701
  2. URSODIOL [Concomitant]
     Indication: CHOLANGITIS SCLEROSING

REACTIONS (5)
  - ABNORMAL SENSATION IN EYE [None]
  - CONJUNCTIVITIS [None]
  - DRY EYE [None]
  - VITREOUS DETACHMENT [None]
  - VITREOUS FLOATERS [None]
